FAERS Safety Report 9049245 (Version 1)
Quarter: 2013Q1

REPORT INFORMATION
  Report Type: Spontaneous
  Country: IT (occurrence: IT)
  Receive Date: 20130205
  Receipt Date: 20130205
  Transmission Date: 20140127
  Serious: Yes (Life-Threatening)
  Sender: FDA-Public Use
  Company Number: IT-ROCHE-1187486

PATIENT
  Age: 8 None
  Sex: Female

DRUGS (3)
  1. ROCEFIN [Suspect]
     Indication: EYE INFECTION BACTERIAL
     Route: 040
     Dates: start: 20111021, end: 20111031
  2. ROCEFIN [Suspect]
     Indication: CELLULITIS ORBITAL
  3. NETTACIN [Concomitant]
     Indication: CORNEAL OEDEMA
     Route: 040
     Dates: start: 20111021, end: 20111108

REACTIONS (1)
  - Epilepsy [Recovered/Resolved]
